FAERS Safety Report 4363188-7 (Version None)
Quarter: 2004Q2

REPORT INFORMATION
  Report Type: 
  Country: None (occurrence: None)
  Receive Date: 20040524
  Receipt Date: 20040227
  Transmission Date: 20050107
  Serious: No
  Sender: FDA-Public Use
  Company Number: US-GLAXOSMITHKLINE-A0500386A

PATIENT
  Age: 77 Year
  Sex: Female

DRUGS (4)
  1. BACTROBAN [Suspect]
     Indication: NASAL DISORDER
     Dosage: 1APP TWICE PER DAY
     Route: 045
     Dates: start: 20040219, end: 20040222
  2. WARFARIN SODIUM [Concomitant]
  3. TOPROL-XL [Concomitant]
  4. SYNTHROID [Concomitant]

REACTIONS (8)
  - NAUSEA [None]
  - PAIN [None]
  - PRURITUS [None]
  - RASH ERYTHEMATOUS [None]
  - SKIN BURNING SENSATION [None]
  - SOMNOLENCE [None]
  - SWOLLEN TONGUE [None]
  - URTICARIA [None]
